FAERS Safety Report 17046978 (Version 1)
Quarter: 2019Q4

REPORT INFORMATION
  Report Type: Spontaneous
  Country: US (occurrence: US)
  Receive Date: 20191119
  Receipt Date: 20191119
  Transmission Date: 20200122
  Serious: No
  Sender: FDA-Public Use
  Company Number: US-ACCORD-155935

PATIENT
  Age: 60 Year
  Sex: Female
  Weight: 42.18 kg

DRUGS (3)
  1. ESTROGEN NOS [Concomitant]
     Active Substance: ESTROGENS
     Dosage: DOSE: ONCE EVERY 8 DAYS
  2. POTASSIUM [Concomitant]
     Active Substance: POTASSIUM
     Dosage: DOSE: 10 MG QOD (EVERY OTHER DAY)
  3. HYDROCHLOROTHIAZIDE ACCORD [Suspect]
     Active Substance: HYDROCHLOROTHIAZIDE
     Indication: OEDEMA
     Dosage: DOSE: 25 MG ONCE A DAY
     Route: 048
     Dates: start: 20190917

REACTIONS (2)
  - Product substitution issue [Unknown]
  - Rash [Recovering/Resolving]

NARRATIVE: CASE EVENT DATE: 20190919
